FAERS Safety Report 9859696 (Version 1)
Quarter: 2014Q1

REPORT INFORMATION
  Report Type: Spontaneous
  Country: JP (occurrence: JP)
  Receive Date: 20140131
  Receipt Date: 20140131
  Transmission Date: 20141002
  Serious: Yes (Other)
  Sender: FDA-Public Use
  Company Number: JP-GLAXOSMITHKLINE-B0964828A

PATIENT
  Age: 7 Decade
  Sex: Female

DRUGS (3)
  1. RELENZA [Suspect]
     Indication: INFLUENZA
     Dosage: 10MG TWICE PER DAY
     Route: 055
     Dates: start: 20140122, end: 20140125
  2. OZEX [Concomitant]
     Indication: INFECTION PROPHYLAXIS
     Dosage: 150MG TWICE PER DAY
     Dates: start: 20140122, end: 20140125
  3. CALONAL [Concomitant]
     Indication: PYREXIA
     Dosage: 200MG TWICE PER DAY
     Dates: start: 20140122, end: 20140125

REACTIONS (1)
  - Hypothermia [Recovered/Resolved]
